FAERS Safety Report 16047487 (Version 1)
Quarter: 2019Q1

REPORT INFORMATION
  Report Type: Spontaneous
  Country: IT (occurrence: IT)
  Receive Date: 20190307
  Receipt Date: 20190307
  Transmission Date: 20190418
  Serious: Yes (Other)
  Sender: FDA-Public Use
  Company Number: IT-MYLANLABS-2019M1021356

PATIENT
  Age: 59 Year
  Sex: Female

DRUGS (1)
  1. HYDROCHLOROTHIAZIDE/LOSARTAN/LOSARTAN POTASSIUM [Suspect]
     Active Substance: HYDROCHLOROTHIAZIDE\LOSARTAN POTASSIUM
     Indication: ESSENTIAL HYPERTENSION
     Route: 065

REACTIONS (1)
  - Pemphigus [Recovered/Resolved]
